FAERS Safety Report 4486473-7 (Version None)
Quarter: 2004Q4

REPORT INFORMATION
  Report Type: 
  Country: None (occurrence: None)
  Receive Date: 20041026
  Receipt Date: 20041026
  Transmission Date: 20050328
  Serious: Yes (Disabling)
  Sender: FDA-Public Use
  Company Number: None

PATIENT
  Sex: Female
  Weight: 58.9676 kg

DRUGS (2)
  1. LARIAM [Suspect]
     Indication: MALARIA PROPHYLAXIS
     Dosage: 1 TABLET   ONCE A WEEK   ORAL
     Route: 048
     Dates: start: 20041002, end: 20041016
  2. PROTONIX [Concomitant]

REACTIONS (16)
  - ASTHENIA [None]
  - CHEST PAIN [None]
  - CONDITION AGGRAVATED [None]
  - DIZZINESS [None]
  - DYSPEPSIA [None]
  - DYSPNOEA [None]
  - ERUCTATION [None]
  - EYE DISORDER [None]
  - FEELING ABNORMAL [None]
  - FLATULENCE [None]
  - HIATUS HERNIA [None]
  - MORBID THOUGHTS [None]
  - NAUSEA [None]
  - PALPITATIONS [None]
  - PANIC ATTACK [None]
  - TREMOR [None]
